FAERS Safety Report 5532358-4 (Version None)
Quarter: 2007Q4

REPORT INFORMATION
  Report Type: 
  Country: None (occurrence: None)
  Receive Date: 20071203
  Receipt Date: 20071119
  Transmission Date: 20080405
  Serious: Yes (Congenital Anomaly, Other)
  Sender: FDA-Public Use
  Company Number: FR-AMGEN-US211553

PATIENT
  Sex: Female

DRUGS (2)
  1. ENBREL [Suspect]
     Indication: ANKYLOSING SPONDYLITIS
     Route: 064
     Dates: start: 20060715
  2. CARTREX [Suspect]
     Dosage: UNKNOWN
     Route: 064

REACTIONS (2)
  - TRANSMISSION OF DRUG VIA SEMEN [None]
  - TRISOMY 21 [None]
